FAERS Safety Report 18257414 (Version 1)
Quarter: 2020Q3

REPORT INFORMATION
  Report Type: Spontaneous
  Country: RU (occurrence: RU)
  Receive Date: 20200911
  Receipt Date: 20200911
  Transmission Date: 20201105
  Serious: Yes (Death, Other)
  Sender: FDA-Public Use
  Company Number: RU-SA-2020SA246915

PATIENT

DRUGS (4)
  1. LOPINAVIR/RITONAVIR [Suspect]
     Active Substance: LOPINAVIR\RITONAVIR
     Indication: COVID-19 TREATMENT
     Dosage: UNK
     Route: 065
  2. CLEXANE [Suspect]
     Active Substance: ENOXAPARIN SODIUM
     Indication: COVID-19 TREATMENT
     Dosage: UNK
     Route: 065
  3. MEROPENEM. [Suspect]
     Active Substance: MEROPENEM
     Indication: COVID-19 TREATMENT
     Dosage: UNK
     Route: 065
  4. OLOKIZUMAB. [Suspect]
     Active Substance: OLOKIZUMAB
     Indication: COVID-19 TREATMENT
     Dosage: UNK
     Route: 058
     Dates: start: 20200807, end: 20200807

REACTIONS (5)
  - Septic shock [Fatal]
  - Off label use [Unknown]
  - Multiple organ dysfunction syndrome [Fatal]
  - COVID-19 pneumonia [Fatal]
  - Pulmonary oedema [Fatal]
